FAERS Safety Report 20665023 (Version 2)
Quarter: 2022Q2

REPORT INFORMATION
  Report Type: Spontaneous
  Country: US (occurrence: US)
  Receive Date: 20220401
  Receipt Date: 20220420
  Transmission Date: 20220721
  Serious: No
  Sender: FDA-Public Use
  Company Number: US-PFIZER INC-202200410919

PATIENT
  Age: 16 Year
  Sex: Female

DRUGS (2)
  1. XANAX [Suspect]
     Active Substance: ALPRAZOLAM
     Dosage: 6 DF (TAKEN 6 OF THE PILLS AND CRUSHED AND SNORTED THE 7TH PILL)
  2. XANAX [Suspect]
     Active Substance: ALPRAZOLAM
     Dosage: 1 DF (TAKEN 6 OF THE PILLS AND CRUSHED AND SNORTED THE 7TH PILL)
     Route: 045

REACTIONS (6)
  - Withdrawal syndrome [Unknown]
  - Tinnitus [Unknown]
  - Toothache [Unknown]
  - Parosmia [Unknown]
  - Off label use [Unknown]
  - Product use issue [Unknown]
